FAERS Safety Report 8467397-7 (Version None)
Quarter: 2012Q2

REPORT INFORMATION
  Report Type: 
  Country: None (occurrence: None)
  Receive Date: 20120626
  Receipt Date: 20120623
  Transmission Date: 20120825
  Serious: Yes (Death)
  Sender: FDA-Public Use
  Company Number: PHHY2012MX054462

PATIENT
  Age: 85 Year
  Sex: Female

DRUGS (1)
  1. DIOVAN [Suspect]
     Indication: HYPERTENSION
     Dosage: ONE TABLET 320 MG PER DAY
     Dates: start: 20070401

REACTIONS (2)
  - MYOCARDIAL INFARCTION [None]
  - PANCREATITIS [None]
